FAERS Safety Report 19057143 (Version 1)
Quarter: 2021Q1

REPORT INFORMATION
  Report Type: Spontaneous
  Country: US (occurrence: US)
  Receive Date: 20210325
  Receipt Date: 20210325
  Transmission Date: 20210420
  Serious: No
  Sender: FDA-Public Use
  Company Number: US-DRREDDYS-USA/USA/21/0132912

PATIENT
  Age: 34 Year
  Sex: Female

DRUGS (2)
  1. ZENATANE [Suspect]
     Active Substance: ISOTRETINOIN
     Indication: PRODUCT USED FOR UNKNOWN INDICATION
     Dosage: RMA ISSUE DATE: 9/29/2020 12:00:00 AM, 10/29/2020 12:00:00 AM, 12/2/2020 12:00:00 AM, 1/6/2021 12:00
     Route: 048
  2. ZENATANE [Suspect]
     Active Substance: ISOTRETINOIN
     Dosage: RMA ISSUE DATE: 2/9/2021 12:00:00 AM
     Route: 048

REACTIONS (1)
  - Vision blurred [Recovered/Resolved]
